FAERS Safety Report 20811721 (Version 3)
Quarter: 2023Q1

REPORT INFORMATION
  Report Type: Report from Study
  Country: FR (occurrence: FR)
  Receive Date: 20220511
  Receipt Date: 20230303
  Transmission Date: 20230417
  Serious: Yes (Hospitalization)
  Sender: FDA-Public Use
  Company Number: FR-JNJFOC-20220512934

PATIENT

DRUGS (1)
  1. IMBRUVICA [Suspect]
     Active Substance: IBRUTINIB
     Indication: Chronic lymphocytic leukaemia
     Route: 048

REACTIONS (6)
  - Cardiac arrest [Unknown]
  - Haemorrhage [Unknown]
  - Cardiac failure [Unknown]
  - Atrial fibrillation [Unknown]
  - Hypertension [Unknown]
  - Tachycardia paroxysmal [Unknown]
